FAERS Safety Report 11093821 (Version 2)
Quarter: 2015Q2

REPORT INFORMATION
  Report Type: Report from Study
  Country: US (occurrence: US)
  Receive Date: 20150506
  Receipt Date: 20150612
  Transmission Date: 20150821
  Serious: Yes (Hospitalization)
  Sender: FDA-Public Use
  Company Number: US-ACTELION-A-US2015-116347

PATIENT
  Age: 76 Year
  Sex: Female

DRUGS (1)
  1. MACITENTAN [Suspect]
     Active Substance: MACITENTAN
     Indication: PULMONARY ARTERIAL HYPERTENSION
     Dosage: 10 MG, QD
     Route: 048
     Dates: start: 20150402

REACTIONS (9)
  - Pneumonia [Unknown]
  - Listless [Unknown]
  - Diarrhoea [Unknown]
  - International normalised ratio abnormal [Unknown]
  - Somnolence [Unknown]
  - Malaise [Unknown]
  - Dyspnoea [Unknown]
  - Dizziness [Unknown]
  - Haemoglobin decreased [Unknown]

NARRATIVE: CASE EVENT DATE: 201504
